FAERS Safety Report 8145675-9 (Version None)
Quarter: 2012Q1

REPORT INFORMATION
  Report Type: 
  Country: None (occurrence: None)
  Receive Date: 20120217
  Receipt Date: 20110104
  Transmission Date: 20120608
  Serious: No
  Sender: FDA-Public Use
  Company Number: US-ALLERGAN-1100021US

PATIENT
  Age: 11 Year
  Sex: Female

DRUGS (2)
  1. DOXYCYCLINE [Concomitant]
     Indication: ACNE
     Dosage: 100 MG, QD
     Route: 048
  2. TAZORAC [Suspect]
     Indication: ACNE
     Dosage: APPLIES A THIN LAYER TO ACNE BREAKOUT AREAS AT BEDTIME, WASHES PRODUCT OFF IN THE MORNING
     Route: 061
     Dates: start: 20100601

REACTIONS (1)
  - SKIN EXFOLIATION [None]
